FAERS Safety Report 10903150 (Version 2)
Quarter: 2015Q4

REPORT INFORMATION
  Report Type: Spontaneous
  Country: AU (occurrence: AU)
  Receive Date: 20150311
  Receipt Date: 20151027
  Transmission Date: 20160304
  Serious: Yes (Other)
  Sender: FDA-Public Use
  Company Number: AU-AMGEN-AUSSP2015020939

PATIENT
  Age: 86 Year
  Sex: Male

DRUGS (1)
  1. PROLIA [Suspect]
     Active Substance: DENOSUMAB
     Indication: OSTEOPOROSIS
     Dosage: UNK
     Route: 065

REACTIONS (6)
  - Arthralgia [Unknown]
  - Weight bearing difficulty [Unknown]
  - Bone marrow disorder [Unknown]
  - Atypical femur fracture [Recovered/Resolved]
  - Bone marrow oedema [Unknown]
  - Pain [Unknown]

NARRATIVE: CASE EVENT DATE: 2014
